FAERS Safety Report 5759913-0 (Version None)
Quarter: 2008Q2

REPORT INFORMATION
  Report Type: 
  Country: None (occurrence: None)
  Receive Date: 20080605
  Receipt Date: 20080603
  Transmission Date: 20081010
  Serious: Yes (Hospitalization)
  Sender: FDA-Public Use
  Company Number: US-BRISTOL-MYERS SQUIBB COMPANY-14214860

PATIENT
  Age: 62 Year
  Sex: Female
  Weight: 73 kg

DRUGS (20)
  1. TAXOL [Suspect]
     Indication: BREAST CANCER
     Route: 042
     Dates: start: 20080318, end: 20080508
  2. SUNITINIB MALATE [Suspect]
     Indication: BREAST CANCER
     Route: 048
     Dates: start: 20080318, end: 20080508
  3. NYSTATIN [Concomitant]
  4. NAPROXEN [Concomitant]
     Indication: PAIN
  5. GLUTAMINE [Concomitant]
  6. ZOLOFT [Concomitant]
     Route: 048
  7. AMITRIPTYLINE HCL [Concomitant]
     Route: 048
  8. SIMVASTATIN [Concomitant]
  9. HYDROCHLOROTHIAZIDE [Concomitant]
  10. LEVOTHYROXINE SODIUM [Concomitant]
  11. PROTONIX [Concomitant]
  12. COMPAZINE [Concomitant]
     Indication: NAUSEA
  13. REQUIP [Concomitant]
     Route: 048
  14. FLUTICASONE [Concomitant]
     Route: 045
  15. CLARITIN [Concomitant]
     Route: 048
  16. VITAMIN B-12 [Concomitant]
  17. VITAMIN CAP [Concomitant]
  18. CALCIUM CITRATE [Concomitant]
  19. MELATONIN [Concomitant]
  20. IMODIUM [Concomitant]
     Indication: DIARRHOEA

REACTIONS (3)
  - HYPONATRAEMIA [None]
  - PNEUMONIA [None]
  - RENAL FAILURE ACUTE [None]
